FAERS Safety Report 8798482 (Version 1)
Quarter: 2012Q4

REPORT INFORMATION
  Report Type: 
  Country: US (occurrence: None)
  Receive Date: 20120917
  Receipt Date: 20120917
  Transmission Date: 20130627
  Serious: Yes (Hospitalization)
  Sender: FDA-Public Use
  Company Number: None

PATIENT
  Sex: Female
  Weight: 55.6 kg

DRUGS (4)
  1. BEVACIZUMAB [Suspect]
  2. LEUCOVORIN CALCIUM [Suspect]
  3. ELOXATIN [Suspect]
  4. 5-FLUOROURACIL [Suspect]

REACTIONS (4)
  - Hypoaesthesia [None]
  - Deep vein thrombosis [None]
  - Pelvic venous thrombosis [None]
  - Peripheral sensory neuropathy [None]
